FAERS Safety Report 4796770-3 (Version None)
Quarter: 2005Q4

REPORT INFORMATION
  Report Type: 
  Country: None (occurrence: None)
  Receive Date: 20051007
  Receipt Date: 20050922
  Transmission Date: 20060501
  Serious: Yes (Hospitalization)
  Sender: FDA-Public Use
  Company Number: 2005-0008637

PATIENT
  Age: 40 Year
  Sex: Male

DRUGS (7)
  1. HEPSERA [Suspect]
     Indication: HEPATITIS B
     Dosage: 10 MG, 1 IN 1 D, ORAL
     Route: 048
     Dates: start: 20040607
  2. ZEFFIX (LAMIVUDINE) [Suspect]
     Indication: HEPATITIS B
     Dosage: 100 MG, 1 IN 1 D, ORAL
     Route: 048
     Dates: start: 20030806
  3. SUMIFERON (INTERFERON ALFA) (6 MIU) [Suspect]
     Indication: HEPATITIS B
     Dosage: 1 IN 1 D
  4. PL GRAN. (PL GRAN.) [Concomitant]
  5. FAMOTIDINE [Concomitant]
  6. LENDORM [Concomitant]
  7. RESTAMIN (DIPHENHYDRAMINE) [Concomitant]

REACTIONS (3)
  - DIZZINESS POSTURAL [None]
  - FALL [None]
  - LOSS OF CONSCIOUSNESS [None]
